FAERS Safety Report 20795723 (Version 1)
Quarter: 2022Q2

REPORT INFORMATION
  Report Type: Spontaneous
  Country: US (occurrence: None)
  Receive Date: 20220504
  Receipt Date: 20220504
  Transmission Date: 20220721
  Serious: Yes (Other)
  Sender: FDA-Public Use
  Company Number: None

PATIENT

DRUGS (1)
  1. LEVOFLOXACIN [Suspect]
     Active Substance: LEVOFLOXACIN

REACTIONS (23)
  - Dyspnoea [None]
  - Gait disturbance [None]
  - Chest pain [None]
  - Paraesthesia [None]
  - Pain [None]
  - Dizziness [None]
  - Nausea [None]
  - Paraesthesia [None]
  - Tooth injury [None]
  - Tooth disorder [None]
  - Dry mouth [None]
  - Stomatitis [None]
  - Cheilitis [None]
  - Tongue dry [None]
  - Asthenopia [None]
  - Photophobia [None]
  - Toothache [None]
  - Hypopnoea [None]
  - Feeling hot [None]
  - Hypoaesthesia [None]
  - Heart rate increased [None]
  - Tendon disorder [None]
  - Drug hypersensitivity [None]

NARRATIVE: CASE EVENT DATE: 20180922
